FAERS Safety Report 16883980 (Version 1)
Quarter: 2019Q4

REPORT INFORMATION
  Report Type: Spontaneous
  Country: TR (occurrence: TR)
  Receive Date: 20191004
  Receipt Date: 20191004
  Transmission Date: 20200122
  Serious: Yes (Other)
  Sender: FDA-Public Use
  Company Number: TR-SUN PHARMACEUTICAL INDUSTRIES LTD-2019RR-222753

PATIENT
  Age: 40 Year
  Sex: Male

DRUGS (5)
  1. ABCIXIMAB [Suspect]
     Active Substance: ABCIXIMAB
     Indication: PROPHYLAXIS
     Dosage: 0.25 MILLIGRAM/KILOGRAM, UNK
     Route: 040
  2. ABCIXIMAB [Suspect]
     Active Substance: ABCIXIMAB
     Dosage: 0.125 MCG/KM/MIN, UNK
     Route: 042
  3. ACETYLSALICYLIC ACID [Suspect]
     Active Substance: ASPIRIN
     Indication: MYOCARDIAL INFARCTION
     Dosage: 300 MILLIGRAM, UNK
     Route: 065
  4. HEPARIN [Suspect]
     Active Substance: HEPARIN SODIUM
     Indication: MYOCARDIAL INFARCTION
     Dosage: 8000 U, UNK
     Route: 065
  5. CLOPIDOGREL [Suspect]
     Active Substance: CLOPIDOGREL BISULFATE
     Indication: MYOCARDIAL INFARCTION
     Dosage: 600 MILLIGRAM, UNK
     Route: 065

REACTIONS (1)
  - Conjunctival haemorrhage [Recovered/Resolved]
